FAERS Safety Report 8189160-7 (Version None)
Quarter: 2012Q1

REPORT INFORMATION
  Report Type: 
  Country: None (occurrence: None)
  Receive Date: 20120306
  Receipt Date: 20120306
  Transmission Date: 20120608
  Serious: Yes (Other)
  Sender: FDA-Public Use
  Company Number: None

PATIENT
  Age: 61 Year
  Sex: Female
  Weight: 154.223 kg

DRUGS (1)
  1. VYTORIN [Suspect]
     Indication: BLOOD CHOLESTEROL INCREASED
     Dosage: 10/40 1 DAILY
     Dates: start: 20070101, end: 20120101

REACTIONS (5)
  - FATIGUE [None]
  - CONSTIPATION [None]
  - NAUSEA [None]
  - HEPATITIS [None]
  - PAIN [None]
